FAERS Safety Report 4683898-1 (Version None)
Quarter: 2005Q2

REPORT INFORMATION
  Report Type: 
  Country: None (occurrence: None)
  Receive Date: 20050607
  Receipt Date: 20050420
  Transmission Date: 20051028
  Serious: Yes (Hospitalization)
  Sender: FDA-Public Use
  Company Number: DE-ROCHE-402449

PATIENT
  Sex: Female
  Weight: 60 kg

DRUGS (4)
  1. XELODA [Suspect]
     Route: 048
     Dates: start: 20041115
  2. BONDRONAT [Suspect]
     Route: 065
     Dates: start: 20040815, end: 20050524
  3. ZOMETA [Suspect]
     Route: 065
  4. AREDIA [Suspect]
     Route: 065
     Dates: start: 19990415

REACTIONS (1)
  - OSTEONECROSIS [None]
